FAERS Safety Report 7204994-0 (Version None)
Quarter: 2010Q4

REPORT INFORMATION
  Report Type: 
  Country: None (occurrence: None)
  Receive Date: 20101230
  Receipt Date: 20101217
  Transmission Date: 20110411
  Serious: Yes (Other)
  Sender: FDA-Public Use
  Company Number: PHHY2010NL86274

PATIENT
  Sex: Female

DRUGS (9)
  1. ZOMETA [Suspect]
     Indication: BREAST CANCER METASTATIC
     Dosage: 4MG/5ML, 1X28DAYS
     Dates: start: 20100921
  2. ZOMETA [Suspect]
     Dosage: 4MG/5ML, 1X28DAYS
     Dates: start: 20101118
  3. ZOMETA [Suspect]
     Dosage: 4MG/5ML, 1X28DAYS
     Dates: start: 20101217
  4. QUESTRAN [Concomitant]
     Dosage: 4 MG, 2X1
  5. MULTI-VITAMINS [Concomitant]
  6. VITAMIN E [Concomitant]
  7. VITAMIN B6 [Concomitant]
  8. FISH OIL [Concomitant]
  9. PROLACTINE [Concomitant]

REACTIONS (9)
  - BACK PAIN [None]
  - CONTUSION [None]
  - COUGH [None]
  - METASTASES TO BONE [None]
  - METASTASES TO SPINE [None]
  - METASTASIS [None]
  - MYELOPATHY [None]
  - SNEEZING [None]
  - SPINAL COLUMN STENOSIS [None]
